FAERS Safety Report 7137657-0 (Version None)
Quarter: 2010Q4

REPORT INFORMATION
  Report Type: 
  Country: None (occurrence: None)
  Receive Date: 20101206
  Receipt Date: 20101129
  Transmission Date: 20110411
  Serious: Yes (Life-Threatening, Hospitalization)
  Sender: FDA-Public Use
  Company Number: DE-TEVA-257960GER

PATIENT
  Age: 28 Year
  Sex: Female

DRUGS (2)
  1. SERTRALINE HYDROCHLORIDE [Suspect]
     Route: 048
  2. OLANZAPINE [Suspect]
     Route: 048

REACTIONS (3)
  - NEUROLEPTIC MALIGNANT SYNDROME [None]
  - OVERDOSE [None]
  - SUICIDE ATTEMPT [None]
